FAERS Safety Report 17092509 (Version 1)
Quarter: 2019Q4

REPORT INFORMATION
  Report Type: Spontaneous
  Country: US (occurrence: US)
  Receive Date: 20191129
  Receipt Date: 20191129
  Transmission Date: 20200122
  Serious: No
  Sender: FDA-Public Use
  Company Number: US-UCBSA-2018014179

PATIENT
  Age: 64 Year
  Sex: Male
  Weight: 57.15 kg

DRUGS (1)
  1. CIMZIA [Suspect]
     Active Substance: CERTOLIZUMAB PEGOL
     Indication: HEPATITIS A VIRUS TEST
     Dosage: UNK, EV 2 WEEKS(QOW)
     Route: 003
     Dates: start: 20180320

REACTIONS (2)
  - Rhinitis allergic [Recovered/Resolved]
  - Intentional product misuse [Unknown]

NARRATIVE: CASE EVENT DATE: 20180320
